FAERS Safety Report 16997953 (Version 2)
Quarter: 2019Q4

REPORT INFORMATION
  Report Type: Spontaneous
  Country: US (occurrence: US)
  Receive Date: 20191106
  Receipt Date: 20191120
  Transmission Date: 20200122
  Serious: Yes (Death, Hospitalization, Disabling, Other)
  Sender: FDA-Public Use
  Company Number: US-EMD SERONO-9126975

PATIENT
  Sex: Female

DRUGS (19)
  1. REBIF [Suspect]
     Active Substance: INTERFERON BETA-1A
     Indication: MULTIPLE SCLEROSIS
     Dosage: REBIF PREFILLED SYRINGE
     Route: 058
     Dates: start: 20161121
  2. ALPHA LIPOIC ACID [Concomitant]
     Active Substance: .ALPHA.-LIPOIC ACID
     Indication: PRODUCT USED FOR UNKNOWN INDICATION
     Route: 048
  3. DELTASONE [Concomitant]
     Active Substance: PREDNISONE
     Indication: PRODUCT USED FOR UNKNOWN INDICATION
     Route: 048
  4. LIPITOR [Concomitant]
     Active Substance: ATORVASTATIN CALCIUM
     Indication: PRODUCT USED FOR UNKNOWN INDICATION
     Route: 048
  5. VITAMINS NOS [Concomitant]
     Active Substance: VITAMINS
     Indication: PRODUCT USED FOR UNKNOWN INDICATION
     Route: 048
  6. VITAMIN D3 [Concomitant]
     Active Substance: CHOLECALCIFEROL
     Indication: PRODUCT USED FOR UNKNOWN INDICATION
     Route: 048
  7. GLUCOSAMINE CHONDROITIN            /08437701/ [Concomitant]
     Indication: PRODUCT USED FOR UNKNOWN INDICATION
     Dosage: GLUCOSAMINE 1500/CHONDRITIN 1200 MG
     Route: 048
  8. MAGNESIUM                          /00082501/ [Concomitant]
     Active Substance: ALUMINUM HYDROXIDE\MAGNESIUM HYDROXIDE
     Indication: PRODUCT USED FOR UNKNOWN INDICATION
     Route: 048
  9. CELLCEPT [Concomitant]
     Active Substance: MYCOPHENOLATE MOFETIL\MYCOPHENOLATE MOFETIL HYDROCHLORIDE
     Indication: PRODUCT USED FOR UNKNOWN INDICATION
     Route: 048
  10. ZOLOFT [Concomitant]
     Active Substance: SERTRALINE HYDROCHLORIDE
     Indication: PRODUCT USED FOR UNKNOWN INDICATION
     Route: 048
  11. NEURONTIN [Concomitant]
     Active Substance: GABAPENTIN
     Indication: PRODUCT USED FOR UNKNOWN INDICATION
     Route: 048
  12. POTASSIUM CHLORIDE. [Concomitant]
     Active Substance: POTASSIUM CHLORIDE
     Indication: PRODUCT USED FOR UNKNOWN INDICATION
     Dosage: CONTROLLED RELEASE TABLET
     Route: 048
  13. DUOLIN                             /01033501/ [Concomitant]
     Active Substance: ALBUTEROL\IPRATROPIUM BROMIDE
     Indication: PRODUCT USED FOR UNKNOWN INDICATION
     Dosage: IPRATROPIUM+ALBUTEROL(0.5-2.5 (3) MG / 3ML SOLUTION: 3ML BY NEBULIZATION ROUTE THREE TIMES A WEEK.
     Route: 045
  14. ACETAMINOPHEN. [Concomitant]
     Active Substance: ACETAMINOPHEN
     Indication: PAIN
     Dosage: 500 MG BY MOUTH EVENRY FOUR HOURS AS NEEDED.
     Route: 048
  15. SYMMETREL [Concomitant]
     Active Substance: AMANTADINE HYDROCHLORIDE
     Indication: PRODUCT USED FOR UNKNOWN INDICATION
     Route: 048
  16. CRANBERRY PLUS VITAMIN C [Concomitant]
     Indication: PRODUCT USED FOR UNKNOWN INDICATION
     Dosage: 4200 MG +20 MG +3 UNITS
     Route: 048
  17. ZETIA [Concomitant]
     Active Substance: EZETIMIBE
     Indication: PRODUCT USED FOR UNKNOWN INDICATION
     Route: 048
  18. ATIVAN [Concomitant]
     Active Substance: LORAZEPAM
     Indication: ANXIETY
     Dosage: EVERY SIX HOURS BY MOUTH AS NEEDED
     Route: 048
  19. PROBIOTIC                          /06395501/ [Concomitant]
     Active Substance: BIFIDOBACTERIUM ANIMALIS LACTIS
     Indication: PRODUCT USED FOR UNKNOWN INDICATION
     Route: 048

REACTIONS (14)
  - Clostridium test positive [Unknown]
  - Atelectasis [Unknown]
  - Pneumonia [Unknown]
  - Pickwickian syndrome [Unknown]
  - Cardiac failure congestive [Unknown]
  - Multiple sclerosis [Unknown]
  - Acute kidney injury [Unknown]
  - Dyslipidaemia [Unknown]
  - Lung opacity [Unknown]
  - Infusion site extravasation [Unknown]
  - Acute respiratory failure [Fatal]
  - Pulmonary oedema [Unknown]
  - Sleep apnoea syndrome [Unknown]
  - Obesity [Unknown]
